FAERS Safety Report 9384541 (Version 1)
Quarter: 2013Q3

REPORT INFORMATION
  Report Type: Spontaneous
  Country: US (occurrence: US)
  Receive Date: 20130705
  Receipt Date: 20130705
  Transmission Date: 20140515
  Serious: Yes (Hospitalization)
  Sender: FDA-Public Use
  Company Number: US-SUN PHARMACEUTICAL INDUSTRIES LTD-2013SUN00944

PATIENT
  Age: 60 Year
  Sex: Female

DRUGS (4)
  1. GABAPENTIN CAPSULES 100MG [Suspect]
     Indication: PRODUCT USED FOR UNKNOWN INDICATION
     Route: 065
  2. ZOLPIDEM [Concomitant]
  3. DIPHENHYDRAMINE [Concomitant]
  4. DEXTROMETHORPAN [Concomitant]

REACTIONS (4)
  - Drug abuse [Unknown]
  - Delirium [Unknown]
  - Hyponatraemia [Unknown]
  - Ataxia [Unknown]
